FAERS Safety Report 20941228 (Version 1)
Quarter: 2022Q2

REPORT INFORMATION
  Report Type: Spontaneous
  Country: US (occurrence: US)
  Receive Date: 20220609
  Receipt Date: 20220609
  Transmission Date: 20220720
  Serious: No
  Sender: FDA-Public Use
  Company Number: US-RIGEL PHARMACEUTICALS, INC.-2022FOS000229

PATIENT
  Sex: Female

DRUGS (4)
  1. TAVALISSE [Suspect]
     Active Substance: FOSTAMATINIB
     Indication: Immune thrombocytopenia
     Dosage: 100 MG, BID
     Route: 048
     Dates: start: 20210722
  2. ELIQUIS [Concomitant]
     Active Substance: APIXABAN
     Indication: Product used for unknown indication
     Dosage: 5 MG, BID
     Dates: start: 202112
  3. DARZALEX [Concomitant]
     Active Substance: DARATUMUMAB
     Indication: Plasma cell myeloma
     Dosage: UNK, EVERY MONTH
     Route: 058
     Dates: start: 20210511
  4. DENOSUMAB [Concomitant]
     Active Substance: DENOSUMAB
     Indication: White blood cell count decreased
     Dosage: 120 MG, EVERY 3 MONTHS
     Route: 058
     Dates: start: 20201110

REACTIONS (4)
  - Hypoacusis [Unknown]
  - Platelet count [Unknown]
  - Balance disorder [Unknown]
  - Dizziness [Unknown]
